FAERS Safety Report 9438512 (Version 1)
Quarter: 2013Q3

REPORT INFORMATION
  Report Type: Spontaneous
  Country: US (occurrence: None)
  Receive Date: 20130802
  Receipt Date: 20130802
  Transmission Date: 20140515
  Serious: Yes (Hospitalization)
  Sender: FDA-Public Use
  Company Number: None

PATIENT
  Age: 69 Year
  Sex: Female
  Weight: 69.85 kg

DRUGS (2)
  1. GEMCITABINE [Suspect]
     Indication: BLADDER CANCER
     Dosage: 2100 MG Q 2 WEEKS IV
     Route: 042
     Dates: start: 20130711
  2. CISPLATIN [Suspect]
     Indication: BLADDER CANCER
     Dosage: 121 MG Q 2 WEEKS IV
     Route: 042
     Dates: start: 20130711

REACTIONS (1)
  - Deep vein thrombosis [None]
